FAERS Safety Report 25976762 (Version 1)
Quarter: 2025Q4

REPORT INFORMATION
  Report Type: Spontaneous
  Country: US (occurrence: US)
  Receive Date: 20251029
  Receipt Date: 20251029
  Transmission Date: 20260117
  Serious: No
  Sender: BRISTOL-MYERS SQUIBB COMPANY
  Company Number: US-BRISTOL-MYERS SQUIBB COMPANY-2025-147292

PATIENT
  Age: 80 Year
  Sex: Female
  Weight: 66.68 kg

DRUGS (2)
  1. THALOMID [Suspect]
     Active Substance: THALIDOMIDE
     Indication: Plasma cell myeloma
     Route: 048
  2. ZOLINZA [Concomitant]
     Active Substance: VORINOSTAT
     Indication: Product used for unknown indication
     Dosage: 200 MG DAILY FOR 2 WEEKS ON, THEN 2 WEEKS OFF
     Route: 048

REACTIONS (1)
  - Anxiety [Recovering/Resolving]
